FAERS Safety Report 18221740 (Version 2)
Quarter: 2020Q4

REPORT INFORMATION
  Report Type: Spontaneous
  Country: US (occurrence: US)
  Receive Date: 20200902
  Receipt Date: 20201202
  Transmission Date: 20210113
  Serious: No
  Sender: FDA-Public Use
  Company Number: US-DECIPHERA PHARMACEUTICALS LLC-2020-US-000320

PATIENT
  Age: 66 Year
  Sex: Male

DRUGS (2)
  1. QINLOCK [Suspect]
     Active Substance: RIPRETINIB
     Indication: GASTROINTESTINAL STROMAL TUMOUR
     Dosage: 150 MILLIGRAM, QD
     Route: 048
     Dates: start: 20200724
  2. QINLOCK [Suspect]
     Active Substance: RIPRETINIB
     Dosage: UNK
     Dates: start: 20200801

REACTIONS (13)
  - Dermatitis acneiform [Unknown]
  - Alopecia [Unknown]
  - Emotional distress [Unknown]
  - Muscle spasms [Unknown]
  - Pruritus [Unknown]
  - Rash [Unknown]
  - Myalgia [Unknown]
  - Fatigue [Unknown]
  - Body temperature increased [Unknown]
  - Lymphadenopathy [Unknown]
  - Diarrhoea [Not Recovered/Not Resolved]
  - Paraesthesia [Not Recovered/Not Resolved]
  - Limb discomfort [Unknown]

NARRATIVE: CASE EVENT DATE: 20200724
